FAERS Safety Report 8858014 (Version 1)
Quarter: 2012Q4

REPORT INFORMATION
  Report Type: 
  Country: US (occurrence: US)
  Receive Date: 20121024
  Receipt Date: 20121024
  Transmission Date: 20130627
  Serious: No
  Sender: FDA-Public Use
  Company Number: US-AMGEN-USASP2011065671

PATIENT
  Age: 44 Year
  Sex: Female

DRUGS (2)
  1. ENBREL [Suspect]
     Indication: RHEUMATOID ARTHRITIS
     Dosage: 50 mg, qwk
     Dates: start: 20110901
  2. ENBREL [Suspect]
     Dates: start: 201109, end: 201204

REACTIONS (7)
  - Drug effect incomplete [Not Recovered/Not Resolved]
  - Pain [Not Recovered/Not Resolved]
  - Contusion [Not Recovered/Not Resolved]
  - Drug ineffective [Recovered/Resolved]
  - Pruritus [Not Recovered/Not Resolved]
  - Injection site discolouration [Not Recovered/Not Resolved]
  - Injection site erythema [Not Recovered/Not Resolved]
